FAERS Safety Report 4397715-0 (Version None)
Quarter: 2004Q3

REPORT INFORMATION
  Report Type: 
  Country: None (occurrence: None)
  Receive Date: 20040713
  Receipt Date: 20040707
  Transmission Date: 20050211
  Serious: Yes (Disabling)
  Sender: FDA-Public Use
  Company Number: NSADSS2003024330

PATIENT
  Age: 54 Year
  Sex: Male

DRUGS (1)
  1. LEVAQUIN [Suspect]
     Indication: INFECTION PROPHYLAXIS
     Dosage: 1 IN 1 DAY, ORAL
     Route: 048

REACTIONS (6)
  - ANAPHYLACTIC SHOCK [None]
  - ARTHRALGIA [None]
  - BLISTER [None]
  - HYPOAESTHESIA [None]
  - POLYNEUROPATHY [None]
  - TENDON DISORDER [None]
